FAERS Safety Report 25269297 (Version 1)
Quarter: 2025Q2

REPORT INFORMATION
  Report Type: Spontaneous
  Country: US (occurrence: None)
  Receive Date: 20250505
  Receipt Date: 20250505
  Transmission Date: 20250717
  Serious: Yes (Other)
  Sender: FDA-CTU
  Company Number: None

PATIENT
  Age: 44 Year
  Sex: Female

DRUGS (6)
  1. CIPROFLOXACIN [Suspect]
     Active Substance: CIPROFLOXACIN
     Indication: Ear infection
     Dosage: 5 DROPS EVERY 12 HOURS AURICULAR (OTIC)
     Route: 001
     Dates: start: 20250224, end: 20250302
  2. CIPRO [Suspect]
     Active Substance: CIPROFLOXACIN HYDROCHLORIDE
  3. FROVATRIPTAN [Concomitant]
     Active Substance: FROVATRIPTAN
  4. MAGNESIUM [Concomitant]
     Active Substance: MAGNESIUM
  5. posassium [Concomitant]
  6. XYZAL [Concomitant]
     Active Substance: LEVOCETIRIZINE DIHYDROCHLORIDE

REACTIONS (2)
  - Tendonitis [None]
  - Disease recurrence [None]

NARRATIVE: CASE EVENT DATE: 20250306
